FAERS Safety Report 11499982 (Version 2)
Quarter: 2015Q3

REPORT INFORMATION
  Report Type: Spontaneous
  Country: PL (occurrence: None)
  Receive Date: 20150910
  Receipt Date: 20150923
  Transmission Date: 20151125
  Serious: No
  Sender: FDA-Public Use
  Company Number: 1509POL000704

PATIENT
  Age: 7 Year
  Sex: Male

DRUGS (1)
  1. CEDAX [Suspect]
     Active Substance: CEFTIBUTEN DIHYDRATE
     Indication: PHARYNGITIS STREPTOCOCCAL
     Route: 048
     Dates: start: 20150830, end: 20150831

REACTIONS (4)
  - Pyrexia [None]
  - Chills [None]
  - Condition aggravated [None]
  - Pharyngitis streptococcal [None]

NARRATIVE: CASE EVENT DATE: 20150831
